FAERS Safety Report 5573265-0 (Version None)
Quarter: 2007Q4

REPORT INFORMATION
  Report Type: 
  Country: None (occurrence: None)
  Receive Date: 20071224
  Receipt Date: 20071218
  Transmission Date: 20080405
  Serious: Yes (Other)
  Sender: FDA-Public Use
  Company Number: PHBS2007JP18303

PATIENT
  Age: 42 Year
  Sex: Male
  Weight: 36 kg

DRUGS (16)
  1. TEGRETOL [Suspect]
     Indication: EPILEPSY
     Dosage: 400 MG, BID
     Route: 048
     Dates: start: 20030101
  2. TEGRETOL [Suspect]
     Dosage: 200 MG, BID
     Route: 048
     Dates: start: 20030101
  3. ZONISAMIDE [Suspect]
     Indication: EPILEPSY
     Dosage: 400 MG, QD
     Route: 048
  4. ZONISAMIDE [Suspect]
     Dosage: 100 MG, BID
     Route: 048
     Dates: start: 20030101
  5. PHENOBAL [Suspect]
     Indication: EPILEPSY
     Dosage: 120 MG, QD
     Route: 048
  6. PHENOBAL [Suspect]
     Dosage: 300 MG, BID
     Route: 048
     Dates: start: 20030101
  7. RISUMIC [Concomitant]
     Dosage: 40 MG, UNK
     Route: 048
  8. MYSLEE [Concomitant]
     Dosage: 10 MG, UNK
     Route: 048
  9. SOLANAX [Concomitant]
     Dosage: 0.8 MG, UNK
     Route: 048
  10. ACTOS [Concomitant]
     Indication: DIABETES MELLITUS
     Dosage: 7.5 MG, UNK
     Route: 048
     Dates: start: 20060101
  11. RESLIN [Concomitant]
     Dosage: 50 MG, UNK
     Route: 048
  12. GASMOTIN [Concomitant]
     Dosage: 15 MG, UNK
     Route: 048
  13. MAGMITT KENEI [Concomitant]
     Route: 065
  14. KINEDAK [Concomitant]
     Dosage: 150 MG, UNK
     Route: 048
  15. INSULIN [Concomitant]
  16. VITAMIN D [Concomitant]
     Dosage: UNK, UNK

REACTIONS (6)
  - BLOOD ALKALINE PHOSPHATASE INCREASED [None]
  - CALCIUM METABOLISM DISORDER [None]
  - CELLULITIS [None]
  - MALNUTRITION [None]
  - OSTEOMALACIA [None]
  - VITAMIN D DEFICIENCY [None]
